FAERS Safety Report 4269656-0 (Version None)
Quarter: 2004Q1

REPORT INFORMATION
  Report Type: 
  Country: None (occurrence: None)
  Receive Date: 20040109
  Receipt Date: 20031121
  Transmission Date: 20041129
  Serious: Yes (Hospitalization)
  Sender: FDA-Public Use
  Company Number: 2003SP000050

PATIENT
  Age: 82 Year
  Sex: Female
  Weight: 51.075 kg

DRUGS (2)
  1. XOPENEX [Suspect]
     Indication: CHRONIC OBSTRUCTIVE AIRWAYS DISEASE
     Dosage: 1.25 MG;Q6H;INHALATION
     Route: 055
     Dates: start: 20031009, end: 20031022
  2. ALBUTEROL [Concomitant]

REACTIONS (1)
  - CHRONIC OBSTRUCTIVE AIRWAYS DISEASE EXACERBATED [None]
